FAERS Safety Report 5555930-4 (Version None)
Quarter: 2007Q4

REPORT INFORMATION
  Report Type: 
  Country: None (occurrence: None)
  Receive Date: 20071213
  Receipt Date: 20071203
  Transmission Date: 20080405
  Serious: Yes (Other)
  Sender: FDA-Public Use
  Company Number: JP-PFIZER INC-2007097745

PATIENT
  Age: 75 Year
  Sex: Male

DRUGS (1)
  1. CELECOX [Suspect]
     Indication: RHEUMATOID ARTHRITIS
     Route: 048
     Dates: start: 20071001, end: 20071116

REACTIONS (4)
  - DRUG INEFFECTIVE [None]
  - LIVER DISORDER [None]
  - PURPURA [None]
  - VASCULITIS [None]
